FAERS Safety Report 20355048 (Version 1)
Quarter: 2022Q1

REPORT INFORMATION
  Report Type: Spontaneous
  Country: US (occurrence: None)
  Receive Date: 20220120
  Receipt Date: 20220120
  Transmission Date: 20220423
  Serious: Yes (Hospitalization)
  Sender: FDA-Public Use
  Company Number: None

PATIENT
  Sex: Male
  Weight: 72.1 kg

DRUGS (3)
  1. FLUOROURACIL [Suspect]
     Active Substance: FLUOROURACIL
     Indication: Product used for unknown indication
     Dates: end: 20220112
  2. LEUCOVORIN CALCIUM [Suspect]
     Active Substance: LEUCOVORIN CALCIUM
     Indication: Product used for unknown indication
     Dates: end: 20220111
  3. ELOXATIN [Suspect]
     Active Substance: OXALIPLATIN
     Indication: Product used for unknown indication
     Dates: end: 20220111

REACTIONS (9)
  - Erosive oesophagitis [None]
  - Abdominal pain lower [None]
  - Frequent bowel movements [None]
  - Nausea [None]
  - Neutropenia [None]
  - Pain [None]
  - Haematemesis [None]
  - Oesophageal rupture [None]
  - Colitis [None]

NARRATIVE: CASE EVENT DATE: 20220117
